FAERS Safety Report 8489662-X (Version None)
Quarter: 2012Q3

REPORT INFORMATION
  Report Type: 
  Country: None (occurrence: None)
  Receive Date: 20120705
  Receipt Date: 20120622
  Transmission Date: 20120928
  Serious: Yes (Hospitalization)
  Sender: FDA-Public Use
  Company Number: US-GLAXOSMITHKLINE-A0683995A

PATIENT
  Age: 43 Year
  Sex: Male
  Weight: 93.2 kg

DRUGS (14)
  1. AVANDAMET [Suspect]
     Indication: TYPE 2 DIABETES MELLITUS
     Route: 048
     Dates: start: 20010101, end: 20061101
  2. NEXIUM [Concomitant]
  3. LEVAQUIN [Concomitant]
  4. CRESTOR [Concomitant]
  5. ATACAND HCT [Concomitant]
  6. ZETIA [Concomitant]
  7. ACETAMINOPHEN [Concomitant]
  8. AMARYL [Concomitant]
  9. METFORMIN HCL [Concomitant]
  10. LOPRESSOR [Concomitant]
  11. AVANDIA [Suspect]
     Indication: DIABETES MELLITUS
     Dosage: 2MG TWICE PER DAY
     Route: 048
  12. FLOVENT [Concomitant]
  13. ASPIRIN [Concomitant]
  14. TRICOR [Concomitant]

REACTIONS (2)
  - MYOCARDIAL INFARCTION [None]
  - HEART INJURY [None]
